FAERS Safety Report 6475296-5 (Version None)
Quarter: 2009Q4

REPORT INFORMATION
  Report Type: 
  Country: None (occurrence: None)
  Receive Date: 20091204
  Receipt Date: 20090528
  Transmission Date: 20100525
  Serious: Yes (Hospitalization, Other)
  Sender: FDA-Public Use
  Company Number: US-ELI_LILLY_AND_COMPANY-US200904002447

PATIENT
  Sex: Female
  Weight: 46.259 kg

DRUGS (14)
  1. FORTEO [Suspect]
     Indication: OSTEOPOROSIS
     Dosage: 20 UG, DAILY (1/D)
     Dates: start: 20080101
  2. AMIODARONE HCL [Concomitant]
     Dosage: 200 MG, DAILY (1/D)
  3. AMLODIPINE BESYLATE [Concomitant]
     Dosage: 2.5 MG, DAILY (1/D)
  4. ASPIRIN [Concomitant]
     Dosage: 81 MG, DAILY (1/D)
  5. CLOPIDOGREL [Concomitant]
     Dosage: 75 MG, DAILY (1/D)
  6. ISOSORBIDE MONONITRATE [Concomitant]
     Dosage: 60 MG, DAILY (1/D)
  7. LEVOTHYROXINE SODIUM [Concomitant]
     Dosage: 25 UG, DAILY (1/D)
  8. LOSARTAN POTASSIUM [Concomitant]
     Dosage: 25 MG, 2/D
  9. METFORMIN HCL [Concomitant]
     Dosage: 500 MG, 2/D
  10. METHOTREXATE SODIUM [Concomitant]
     Dosage: 7.5 MG, WEEKLY (1/W)
  11. METOPROLOL SUCCINATE [Concomitant]
     Dosage: 50 MG, UNK
  12. NITROGLYCERIN [Concomitant]
     Indication: ANGINA PECTORIS
     Dosage: 0.4 MG, AS NEEDED
     Route: 060
  13. PREDNISONE [Concomitant]
     Dosage: 5 MG, DAILY (1/D)
  14. ROSUVASTATIN [Concomitant]
     Dosage: 10 MG, DAILY (1/D)

REACTIONS (10)
  - ACUTE MYOCARDIAL INFARCTION [None]
  - CARDIAC FAILURE CONGESTIVE [None]
  - CHEST PAIN [None]
  - DIARRHOEA [None]
  - GASTROENTERITIS VIRAL [None]
  - HYPERTENSIVE CRISIS [None]
  - MEDICATION ERROR [None]
  - MUSCLE ATROPHY [None]
  - RENAL ARTERY STENOSIS [None]
  - TEMPORAL ARTERITIS [None]
